FAERS Safety Report 7970731-5 (Version None)
Quarter: 2011Q4

REPORT INFORMATION
  Report Type: 
  Country: None (occurrence: None)
  Receive Date: 20111122
  Receipt Date: 20110624
  Transmission Date: 20120403
  Serious: No
  Sender: FDA-Public Use
  Company Number: PHHY2011US56672

PATIENT
  Age: 42 Year
  Sex: Female
  Weight: 72.6 kg

DRUGS (3)
  1. IBUPROFEN [Concomitant]
  2. ACETAMINOPHEN [Concomitant]
  3. GILENYA [Suspect]
     Dosage: 0.5 MG, DAILY, ORAL
     Route: 048

REACTIONS (2)
  - PARAESTHESIA [None]
  - HYPOAESTHESIA [None]
